FAERS Safety Report 8928997 (Version 1)
Quarter: 2012Q4

REPORT INFORMATION
  Report Type: 
  Country: BR (occurrence: BR)
  Receive Date: 20121127
  Receipt Date: 20121127
  Transmission Date: 20130627
  Serious: Yes (Death, Other)
  Sender: FDA-Public Use
  Company Number: BR-AMGEN-BRASP2012075975

PATIENT
  Age: 54 Year
  Sex: Female

DRUGS (2)
  1. ENBREL [Suspect]
     Indication: RHEUMATOID ARTHRITIS
     Dosage: 50 mg, once weekly
     Route: 058
     Dates: start: 201203
  2. MELOXICAM [Concomitant]
     Indication: ARTHRITIS
     Dosage: UNK
     Dates: start: 2009, end: 201210

REACTIONS (1)
  - Leukaemia [Fatal]
